FAERS Safety Report 12202409 (Version 1)
Quarter: 2016Q1

REPORT INFORMATION
  Report Type: Spontaneous
  Country: US (occurrence: US)
  Receive Date: 20160322
  Receipt Date: 20160322
  Transmission Date: 20160526
  Serious: Yes (Other)
  Sender: FDA-Public Use
  Company Number: US-SUNOVION-2016SUN000700

PATIENT
  Age: 70 Year
  Sex: Female

DRUGS (1)
  1. LATUDA [Suspect]
     Active Substance: LURASIDONE HYDROCHLORIDE
     Indication: BIPOLAR DISORDER
     Dosage: 40 MG, UNK
     Route: 048

REACTIONS (14)
  - Chills [Unknown]
  - Influenza like illness [Unknown]
  - Balance disorder [Unknown]
  - Heart rate increased [Unknown]
  - Agitation [Unknown]
  - Seizure like phenomena [Unknown]
  - Pyrexia [Unknown]
  - Fear of falling [Unknown]
  - Confusional state [Unknown]
  - Dizziness [Unknown]
  - Drug administration error [Unknown]
  - Hostility [Unknown]
  - Pharyngeal lesion [Unknown]
  - Oral disorder [Unknown]
